FAERS Safety Report 19101635 (Version 1)
Quarter: 2021Q2

REPORT INFORMATION
  Report Type: Spontaneous
  Country: ML (occurrence: ML)
  Receive Date: 20210407
  Receipt Date: 20210407
  Transmission Date: 20210717
  Serious: Yes (Other)
  Sender: FDA-Public Use
  Company Number: ML-LUPIN PHARMACEUTICALS INC.-2021-04286

PATIENT
  Age: 9 Year

DRUGS (3)
  1. AMOXICILLINE/ACIDE CLAVULANIQUE [Concomitant]
     Active Substance: AMOXICILLIN\CLAVULANIC ACID
     Indication: ANTIBIOTIC PROPHYLAXIS
     Dosage: UNK
     Route: 065
  2. METHYLPREDNISOLONE. [Suspect]
     Active Substance: METHYLPREDNISOLONE
     Indication: NASOPHARYNGITIS
     Dosage: UNK, INJECTABLE
     Route: 065
  3. BETAMETHASONE. [Suspect]
     Active Substance: BETAMETHASONE
     Indication: NASOPHARYNGITIS
     Dosage: DROPS
     Route: 065

REACTIONS (1)
  - Varicella [Unknown]
